FAERS Safety Report 18109479 (Version 2)
Quarter: 2024Q4

REPORT INFORMATION
  Report Type: Spontaneous
  Country: JP (occurrence: JP)
  Receive Date: 20200804
  Receipt Date: 20241023
  Transmission Date: 20250115
  Serious: Yes (Other)
  Sender: MERCK
  Company Number: JP-009507513-2008JPN000969

PATIENT
  Age: 66 Year
  Sex: Male

DRUGS (2)
  1. TEMOZOLOMIDE [Suspect]
     Active Substance: TEMOZOLOMIDE
     Indication: Glioblastoma
     Dosage: 75 MILLIGRAM/SQ. METER, DAILY, FOR 42 DAYS, INITIAL CHEMOTHERAPY
     Route: 048
  2. TEMOZOLOMIDE [Suspect]
     Active Substance: TEMOZOLOMIDE
     Dosage: 150 MILLIGRAM/SQ. METER, FOR 5 DAYS, EVERY 28-DAY CYCLE, 8 CYCLES, MAINTENANCE THERAPY
     Route: 048

REACTIONS (3)
  - Pneumonia bacterial [Unknown]
  - Lymphopenia [Recovered/Resolved]
  - Lymphopenia [Unknown]
